FAERS Safety Report 19755608 (Version 9)
Quarter: 2023Q1

REPORT INFORMATION
  Report Type: Spontaneous
  Country: US (occurrence: US)
  Receive Date: 20210827
  Receipt Date: 20230322
  Transmission Date: 20230418
  Serious: No
  Sender: FDA-Public Use
  Company Number: US-PFIZER INC-2021688483

PATIENT
  Age: 82 Year
  Sex: Female

DRUGS (1)
  1. XELJANZ [Suspect]
     Active Substance: TOFACITINIB CITRATE
     Indication: Rheumatoid arthritis
     Dosage: 5 MG, 2X/DAY
     Route: 048
     Dates: start: 20210421

REACTIONS (22)
  - Drug ineffective [Unknown]
  - Therapeutic response unexpected [Unknown]
  - Sensitivity to weather change [Unknown]
  - Condition aggravated [Unknown]
  - Muscle spasms [Unknown]
  - Headache [Unknown]
  - Joint swelling [Unknown]
  - Fluid retention [Unknown]
  - Laziness [Unknown]
  - Nasopharyngitis [Unknown]
  - Musculoskeletal stiffness [Not Recovered/Not Resolved]
  - Pain [Not Recovered/Not Resolved]
  - Crepitations [Unknown]
  - Joint swelling [Unknown]
  - Discouragement [Unknown]
  - Feeling abnormal [Unknown]
  - Swelling [Unknown]
  - Movement disorder [Unknown]
  - Asthenia [Unknown]
  - Intentional dose omission [Unknown]
  - Product dose omission in error [Unknown]
  - Product dose omission issue [Unknown]
